FAERS Safety Report 4733087-7 (Version None)
Quarter: 2005Q3

REPORT INFORMATION
  Report Type: 
  Country: None (occurrence: None)
  Receive Date: 20050729
  Receipt Date: 20050722
  Transmission Date: 20060218
  Serious: Yes (Hospitalization)
  Sender: FDA-Public Use
  Company Number: BEWYE854525JUL05

PATIENT
  Age: 54 Year
  Sex: Male

DRUGS (4)
  1. SIROLIMUS (SIROLIMUS, , 0) [Suspect]
     Indication: PROPHYLAXIS AGAINST TRANSPLANT REJECTION
     Dosage: 6 MG 1X PER 1 DAY ORAL
     Route: 048
     Dates: start: 20050426
  2. METHYLPREDNISOLONE [Suspect]
     Indication: PROPHYLAXIS AGAINST TRANSPLANT REJECTION
     Dosage: 12 MG/DAY ORAL
     Route: 048
     Dates: start: 20050427
  3. MYCOPHENOLATE MOFETIL (MYCOPHENOLATE MOFETIL, , 0) [Suspect]
     Indication: PROPHYLAXIS AGAINST TRANSPLANT REJECTION
     Dosage: 2000 MG/DAY ORAL
     Route: 048
     Dates: start: 20050426
  4. ZENAPAX [Concomitant]

REACTIONS (1)
  - KIDNEY TRANSPLANT REJECTION [None]
